FAERS Safety Report 6940151-0 (Version None)
Quarter: 2010Q3

REPORT INFORMATION
  Report Type: 
  Country: None (occurrence: None)
  Receive Date: 20100825
  Receipt Date: 20100811
  Transmission Date: 20110219
  Serious: Yes (Other)
  Sender: FDA-Public Use
  Company Number: RO-RANBAXY-2010RR-35822

PATIENT
  Age: 51 Year
  Sex: Female

DRUGS (8)
  1. INDAPAMIDE [Suspect]
     Indication: HYPERTENSION
  2. ENALAPRIL [Suspect]
     Indication: HYPERTENSION
  3. METOPROLOL [Suspect]
     Indication: HYPERTENSION
  4. SALAZOPYRIN [Suspect]
     Dosage: 2 G, UNK
     Dates: start: 20010101, end: 20060101
  5. INFLIXIMAB [Suspect]
     Dosage: 5 MG/KG, UNK
  6. LEFLUNOMIDE [Suspect]
     Dosage: 10 MG, UNK
  7. LEFLUNOMIDE [Concomitant]
     Dosage: 20 MG, UNK
  8. METFORMIN [Concomitant]
     Indication: DIABETES MELLITUS
     Route: 048

REACTIONS (1)
  - LICHENOID KERATOSIS [None]
